FAERS Safety Report 15436735 (Version 1)
Quarter: 2018Q3

REPORT INFORMATION
  Report Type: Other
  Country: IN (occurrence: IN)
  Receive Date: 20180927
  Receipt Date: 20180927
  Transmission Date: 20181010
  Serious: Yes (Hospitalization)
  Sender: FDA-Public Use
  Company Number: IN-B. BRAUN MEDICAL INC.-2055437

PATIENT
  Age: 48 Year
  Sex: Female

DRUGS (1)
  1. SODIUM CHLORIDE INJECTIONS USP 0264?7800?00 0264?7800?10 [Suspect]
     Active Substance: SODIUM CHLORIDE

REACTIONS (2)
  - Parkinsonism [None]
  - Osmotic demyelination syndrome [None]
